FAERS Safety Report 16584713 (Version 2)
Quarter: 2019Q3

REPORT INFORMATION
  Report Type: Spontaneous
  Country: US (occurrence: US)
  Receive Date: 20190717
  Receipt Date: 20190802
  Transmission Date: 20191004
  Serious: Yes (Hospitalization)
  Sender: FDA-Public Use
  Company Number: US-TORRENT-00009001

PATIENT
  Age: 47 Year
  Sex: Male

DRUGS (2)
  1. TOPIRAMATE. [Interacting]
     Active Substance: TOPIRAMATE
     Indication: EATING DISORDER
     Dosage: UNKNOWN
  2. LITHIUM CARBONATE. [Suspect]
     Active Substance: LITHIUM CARBONATE
     Indication: MANIA
     Dosage: UNKNOWN

REACTIONS (3)
  - Renal failure [Recovering/Resolving]
  - Drug interaction [Recovering/Resolving]
  - Toxicity to various agents [Recovering/Resolving]
